FAERS Safety Report 16562168 (Version 1)
Quarter: 2019Q3

REPORT INFORMATION
  Report Type: Spontaneous
  Country: FR (occurrence: FR)
  Receive Date: 20190711
  Receipt Date: 20190711
  Transmission Date: 20191004
  Serious: Yes (Hospitalization)
  Sender: FDA-Public Use
  Company Number: FR-MYLANLABS-2019M1063869

PATIENT
  Age: 64 Year
  Sex: Male
  Weight: 70.2 kg

DRUGS (6)
  1. AMIODARONE [Suspect]
     Active Substance: AMIODARONE
     Indication: ARRHYTHMIA
     Dosage: 3 DOSAGE FORM, TOTAL
     Route: 048
     Dates: start: 20190116, end: 20190116
  2. AMIODARONE [Suspect]
     Active Substance: AMIODARONE
     Dosage: 2 CP/J JUSQU^AU 20/01 PUIS 1 CP/JOUR
     Route: 048
     Dates: start: 20190117, end: 20190123
  3. AMIODARONE HYDROCHLORIDE. [Suspect]
     Active Substance: AMIODARONE HYDROCHLORIDE
     Indication: ARRHYTHMIA
     Dosage: 5 DOSAGE FORM, (5 AMPOULES)
     Route: 042
     Dates: start: 20190116, end: 20190116
  4. CASPOFUNGIN [Suspect]
     Active Substance: CASPOFUNGIN
     Dosage: 50 MILLIGRAM, QD
     Route: 042
     Dates: start: 20190116, end: 20190123
  5. VORICONAZOLE. [Suspect]
     Active Substance: VORICONAZOLE
     Indication: PRODUCT USED FOR UNKNOWN INDICATION
     Dosage: 800 MILLIGRAM, QD
     Route: 042
     Dates: start: 20190122, end: 20190123
  6. CASPOFUNGIN [Suspect]
     Active Substance: CASPOFUNGIN
     Indication: PRODUCT USED FOR UNKNOWN INDICATION
     Dosage: 70 MILLIGRAM, QD
     Route: 042
     Dates: start: 20190115, end: 20190115

REACTIONS (2)
  - Electrocardiogram QT prolonged [Recovering/Resolving]
  - Cardiac arrest [Recovering/Resolving]

NARRATIVE: CASE EVENT DATE: 20190123
